FAERS Safety Report 18251172 (Version 2)
Quarter: 2022Q1

REPORT INFORMATION
  Report Type: Spontaneous
  Country: US (occurrence: US)
  Receive Date: 20200910
  Receipt Date: 20220226
  Transmission Date: 20220423
  Serious: Yes (Hospitalization, Other)
  Sender: FDA-Public Use
  Company Number: US-SANOFI-00263055

PATIENT
  Age: 75 Year
  Sex: Female

DRUGS (1)
  1. DUPIXENT [Suspect]
     Active Substance: DUPILUMAB
     Dosage: UNK

REACTIONS (1)
  - Anaphylactic reaction [Recovered/Resolved]
